FAERS Safety Report 17386398 (Version 2)
Quarter: 2020Q1

REPORT INFORMATION
  Report Type: Spontaneous
  Country: IT (occurrence: IT)
  Receive Date: 20200206
  Receipt Date: 20200331
  Transmission Date: 20200409
  Serious: Yes (Other)
  Sender: FDA-Public Use
  Company Number: IT-PFIZER INC-2020051545

PATIENT
  Age: 60 Year
  Sex: Female

DRUGS (1)
  1. NIVESTIM [Suspect]
     Active Substance: FILGRASTIM
     Indication: COLONY STIMULATING FACTOR THERAPY
     Dosage: 30 MILLION IU, 2X/WEEK
     Route: 058
     Dates: start: 20190701

REACTIONS (1)
  - Syncope [Unknown]

NARRATIVE: CASE EVENT DATE: 20191226
